FAERS Safety Report 11126194 (Version 1)
Quarter: 2015Q2

REPORT INFORMATION
  Report Type: Spontaneous
  Country: US (occurrence: US)
  Receive Date: 20150520
  Receipt Date: 20150520
  Transmission Date: 20150821
  Serious: Yes (Other)
  Sender: FDA-Public Use
  Company Number: US-PFIZER INC-2015171440

PATIENT
  Sex: Female
  Weight: 63.49 kg

DRUGS (14)
  1. ZOFRAN /00955301/ [Concomitant]
     Active Substance: ONDANSETRON HYDROCHLORIDE
     Dosage: UNK
  2. NUVARING [Concomitant]
     Active Substance: ETHINYL ESTRADIOL\ETONOGESTREL
     Dosage: UNK
  3. CELEBREX [Suspect]
     Active Substance: CELECOXIB
     Indication: FASCIITIS
  4. CLOBEX [Concomitant]
     Active Substance: CLOBETASOL PROPIONATE
     Dosage: UNK
  5. ZITHRANOL [Concomitant]
     Active Substance: ANTHRALIN
     Dosage: UNK
  6. CELEBREX [Suspect]
     Active Substance: CELECOXIB
     Indication: ARTHRALGIA
     Dosage: UNK
     Route: 065
     Dates: start: 20150224, end: 20150302
  7. SINGULAIR [Concomitant]
     Active Substance: MONTELUKAST SODIUM
     Dosage: UNK
  8. VECTICAL [Concomitant]
     Active Substance: CALCITRIOL
     Dosage: UNK
  9. TOPICORT SPRAY [Concomitant]
     Dosage: UNK
  10. METHOTREXATE SODIUM. [Suspect]
     Active Substance: METHOTREXATE SODIUM
     Indication: ARTHRALGIA
     Dosage: UNK
     Route: 065
     Dates: start: 201412, end: 20150302
  11. HUMIRA [Suspect]
     Active Substance: ADALIMUMAB
     Indication: PSORIASIS
     Dosage: 40 MG, 2X/WEEK
     Route: 058
     Dates: start: 201405, end: 201503
  12. VITAMIN D /00107901/ [Concomitant]
     Active Substance: ERGOCALCIFEROL
     Dosage: UNK
  13. CALCIPOTRIENE. [Concomitant]
     Active Substance: CALCIPOTRIENE
     Dosage: UNK
  14. CLODAN [Concomitant]
     Active Substance: CLOBETASOL PROPIONATE

REACTIONS (8)
  - Psoriatic arthropathy [Unknown]
  - Drug effect decreased [Unknown]
  - Platelet count increased [Unknown]
  - Plantar fasciitis [Unknown]
  - Pain [Unknown]
  - Psoriasis [Unknown]
  - Pain in extremity [Unknown]
  - Deep vein thrombosis [Unknown]

NARRATIVE: CASE EVENT DATE: 201412
